FAERS Safety Report 10924314 (Version 1)
Quarter: 2015Q1

REPORT INFORMATION
  Report Type: Spontaneous
  Country: US (occurrence: None)
  Receive Date: 20150129
  Receipt Date: 20150129
  Transmission Date: 20150721
  Serious: Yes (Hospitalization)
  Sender: FDA-Public Use
  Company Number: 102499U

PATIENT
  Age: 33 Year
  Sex: Male
  Weight: 101.1 kg

DRUGS (1)
  1. KEPPRA [Suspect]
     Active Substance: LEVETIRACETAM
     Indication: SEIZURE
     Dates: start: 201212, end: 201309

REACTIONS (3)
  - Inappropriate schedule of drug administration [None]
  - Seizure [None]
  - Drug dose omission [None]

NARRATIVE: CASE EVENT DATE: 201309
